FAERS Safety Report 7897240-6 (Version None)
Quarter: 2011Q4

REPORT INFORMATION
  Report Type: 
  Country: None (occurrence: None)
  Receive Date: 20111107
  Receipt Date: 20111026
  Transmission Date: 20120403
  Serious: Yes (Hospitalization)
  Sender: FDA-Public Use
  Company Number: US-CELGENEUS-163-21880-11103398

PATIENT
  Age: 85 Year
  Sex: Female

DRUGS (10)
  1. OMEPRAZOLE [Concomitant]
     Route: 065
  2. TRIAMTERENE AND HYDROCHLOROTHIAZIDE [Concomitant]
     Route: 065
  3. DEXAMETHASONE [Concomitant]
     Route: 065
  4. FRESH FROZEN PLASMA [Concomitant]
     Route: 041
     Dates: start: 20110501, end: 20110501
  5. DEXAMETHASONE [Concomitant]
     Route: 065
     Dates: start: 20110505
  6. LOVASTATIN [Concomitant]
     Route: 065
  7. INSULIN [Concomitant]
     Route: 065
  8. REVLIMID [Suspect]
     Indication: MULTIPLE MYELOMA
     Dosage: 10 MILLIGRAM
     Route: 048
     Dates: start: 20110401
  9. INSULIN [Concomitant]
     Route: 065
     Dates: start: 20110505
  10. AMLODIPINE [Concomitant]
     Route: 065

REACTIONS (5)
  - ASTHENIA [None]
  - HYPERGLYCAEMIA [None]
  - RENAL FAILURE ACUTE [None]
  - MYALGIA [None]
  - FALL [None]
